FAERS Safety Report 22983570 (Version 2)
Quarter: 2024Q3

REPORT INFORMATION
  Report Type: Spontaneous
  Country: US (occurrence: US)
  Receive Date: 20230926
  Receipt Date: 20240921
  Transmission Date: 20241016
  Serious: No
  Sender: AUROBINDO
  Company Number: US-AUROBINDO-AUR-APL-2023-052258

PATIENT
  Age: 58 Year
  Sex: Female
  Weight: 57.6 kg

DRUGS (2)
  1. ALENDRONATE SODIUM [Suspect]
     Active Substance: ALENDRONATE SODIUM
     Indication: Osteoporosis
     Dosage: 1 DOSAGE FORM, EVERY WEEK(1 TABLET ONCE A WEEK)
     Route: 048
     Dates: start: 202101, end: 20230731
  2. LEVOTHYROXINE [Concomitant]
     Active Substance: LEVOTHYROXINE\LEVOTHYROXINE SODIUM
     Indication: Product used for unknown indication
     Dosage: UNK, DAILY
     Route: 065
     Dates: start: 2008

REACTIONS (1)
  - Alopecia [Not Recovered/Not Resolved]
